FAERS Safety Report 20298921 (Version 1)
Quarter: 2022Q1

REPORT INFORMATION
  Report Type: Spontaneous
  Country: ES (occurrence: ES)
  Receive Date: 20220105
  Receipt Date: 20220105
  Transmission Date: 20220423
  Serious: Yes (Death, Other)
  Sender: FDA-Public Use
  Company Number: ES-EMA-DD-20211221-pawar_p-120359

PATIENT
  Age: 71 Year
  Sex: Male

DRUGS (10)
  1. ANIDULAFUNGIN [Suspect]
     Active Substance: ANIDULAFUNGIN
     Indication: Abdominal infection
     Dosage: UNK; THERAPY END DATE: ASKU
     Route: 065
     Dates: start: 2017
  2. CASPOFUNGIN [Suspect]
     Active Substance: CASPOFUNGIN
     Indication: Candida infection
     Dosage: UNK; THERAPY START AND END DATE: ASKU; CASPOFUNGIN ACETATE
     Route: 065
  3. CASPOFUNGIN [Suspect]
     Active Substance: CASPOFUNGIN
     Dosage: UNK; CASPOFUNGIN ACETATE
     Route: 065
     Dates: start: 2017, end: 2017
  4. FLUCONAZOLE [Suspect]
     Active Substance: FLUCONAZOLE
     Indication: Abdominal infection
     Dosage: UNK; THERAPY END DATE: ASKU
     Route: 065
     Dates: start: 2017
  5. LINEZOLID [Suspect]
     Active Substance: LINEZOLID
     Indication: Evidence based treatment
     Dosage: UNK; THERAPY END DATE: ASKU
     Route: 065
     Dates: start: 2017
  6. CEFTOLOZANE SULFATE\TAZOBACTAM SODIUM [Suspect]
     Active Substance: CEFTOLOZANE SULFATE\TAZOBACTAM SODIUM
     Indication: Evidence based treatment
     Dosage: UNK; THERAPY END DATE: ASKU
     Route: 065
     Dates: start: 2017
  7. DAPTOMYCIN [Suspect]
     Active Substance: DAPTOMYCIN
     Indication: Evidence based treatment
     Dosage: UNK
     Route: 065
     Dates: start: 20170511, end: 201706
  8. DAPTOMYCIN [Suspect]
     Active Substance: DAPTOMYCIN
     Indication: Haematoma infection
     Dosage: UNK
     Route: 065
     Dates: start: 20170625, end: 2017
  9. VANCOMYCIN [Suspect]
     Active Substance: VANCOMYCIN
     Indication: Abdominal infection
     Dosage: UNK; THERAPY END DATE: ASKU
     Route: 065
     Dates: start: 2017
  10. MEROPENEM [Suspect]
     Active Substance: MEROPENEM
     Indication: Haematoma infection
     Dosage: UNK; THERAPY END DATE: ASKU
     Route: 065
     Dates: start: 20170511

REACTIONS (12)
  - Multiple organ dysfunction syndrome [Fatal]
  - Intestinal ischaemia [Fatal]
  - Hypoperfusion [Fatal]
  - Rectal perforation [Fatal]
  - Upper gastrointestinal haemorrhage [Fatal]
  - Spinal cord disorder [Fatal]
  - Sepsis [Fatal]
  - Aortoenteric fistula [Fatal]
  - Respiratory tract infection [Fatal]
  - Systemic inflammatory response syndrome [Fatal]
  - Pneumonia [Fatal]
  - Haemodynamic instability [Fatal]

NARRATIVE: CASE EVENT DATE: 20170101
